FAERS Safety Report 5933392-2 (Version None)
Quarter: 2008Q4

REPORT INFORMATION
  Report Type: 
  Country: None (occurrence: None)
  Receive Date: 20081023
  Receipt Date: 20081010
  Transmission Date: 20090506
  Serious: Yes (Other)
  Sender: FDA-Public Use
  Company Number: 238508J08USA

PATIENT
  Age: 63 Year
  Sex: Female
  Weight: 54 kg

DRUGS (4)
  1. REBIF [Suspect]
     Indication: MULTIPLE SCLEROSIS
     Dosage: 22 MCG, 3 IN 1 WEEKS, SUBCUTANEOUS, 44 MCG, 3 IN 1 WEEKS, SUBCUTANEOUS
     Route: 058
     Dates: start: 20080228
  2. THEOPHYLLINE [Concomitant]
  3. IBUPROFEN [Concomitant]
  4. HYDROCODONE (HYDROCODONE) [Concomitant]

REACTIONS (2)
  - CATARACT [None]
  - INJECTION SITE PAIN [None]
